FAERS Safety Report 22624154 (Version 1)
Quarter: 2023Q2

REPORT INFORMATION
  Report Type: Spontaneous
  Country: GB (occurrence: GB)
  Receive Date: 20230621
  Receipt Date: 20230621
  Transmission Date: 20230722
  Serious: Yes (Hospitalization)
  Sender: FDA-Public Use
  Company Number: GB-MYLANLABS-2023M1063687

PATIENT
  Age: 97 Year
  Sex: Female

DRUGS (1)
  1. ONDANSETRON [Suspect]
     Active Substance: ONDANSETRON
     Indication: Product used for unknown indication
     Dosage: 4 MILLIGRAM (INTRAVENOUS BOLUS)
     Route: 042

REACTIONS (3)
  - Cardiac arrest [Recovering/Resolving]
  - Cyanosis [Recovering/Resolving]
  - Bradycardia [Recovering/Resolving]
